FAERS Safety Report 17766604 (Version 2)
Quarter: 2020Q2

REPORT INFORMATION
  Report Type: Spontaneous
  Country: US (occurrence: US)
  Receive Date: 20200511
  Receipt Date: 20200609
  Transmission Date: 20200714
  Serious: No
  Sender: FDA-Public Use
  Company Number: US-VERTEX PHARMACEUTICALS-2020-010172

PATIENT
  Sex: Male

DRUGS (18)
  1. TRAMADOL. [Concomitant]
     Active Substance: TRAMADOL
  2. ESZOPICLONE. [Concomitant]
     Active Substance: ESZOPICLONE
  3. ALBUTEROL [SALBUTAMOL] [Concomitant]
     Active Substance: ALBUTEROL
  4. PULMOZYME [Concomitant]
     Active Substance: DORNASE ALFA
  5. FLUTICASONE. [Concomitant]
     Active Substance: FLUTICASONE
  6. TRIKAFTA [Suspect]
     Active Substance: ELEXACAFTOR\IVACAFTOR\TEZACAFTOR
     Indication: CYSTIC FIBROSIS
     Dosage: 2 TABS (100 MG ELEXACAFTOR/50 MG TEZACAFTOR/75 MG IVACAFTOR) AM AND 1 TAB (150 MG IVACAFTOR) PM
     Route: 048
     Dates: start: 202003, end: 2020
  7. CAYSTON [Concomitant]
     Active Substance: AZTREONAM
  8. PAROXETINE. [Concomitant]
     Active Substance: PAROXETINE
  9. BUDESONIDE. [Concomitant]
     Active Substance: BUDESONIDE
  10. ATORVASTATIN [Concomitant]
     Active Substance: ATORVASTATIN
  11. LISINOPRIL. [Concomitant]
     Active Substance: LISINOPRIL
  12. CREON [Concomitant]
     Active Substance: PANCRELIPASE AMYLASE\PANCRELIPASE LIPASE\PANCRELIPASE PROTEASE
  13. LANSOPRAZOLE. [Concomitant]
     Active Substance: LANSOPRAZOLE
  14. LORATADINE. [Concomitant]
     Active Substance: LORATADINE
  15. ADVAIR HFA [Concomitant]
     Active Substance: FLUTICASONE PROPIONATE\SALMETEROL XINAFOATE
  16. CULTURELLE [Concomitant]
     Active Substance: LACTOBACILLUS RHAMNOSUS
  17. COLISTIMETHATE [COLISTIMETHATE SODIUM] [Concomitant]
     Active Substance: COLISTIMETHATE SODIUM
  18. EPINEPHRINE. [Concomitant]
     Active Substance: EPINEPHRINE

REACTIONS (1)
  - Rash [Recovered/Resolved]

NARRATIVE: CASE EVENT DATE: 2020
